FAERS Safety Report 13805924 (Version 2)
Quarter: 2018Q3

REPORT INFORMATION
  Report Type: Spontaneous
  Country: US (occurrence: US)
  Receive Date: 20170728
  Receipt Date: 20180921
  Transmission Date: 20181010
  Serious: No
  Sender: FDA-Public Use
  Company Number: US-IGSA-GTI004481

PATIENT
  Age: 72 Year
  Sex: Female

DRUGS (12)
  1. ALLEGRA [Concomitant]
     Active Substance: FEXOFENADINE HYDROCHLORIDE
     Dosage: UNK
  2. LISINOPRIL. [Concomitant]
     Active Substance: LISINOPRIL
     Indication: HYPERTENSION
     Dosage: UNK
  3. MULTIVITAMINS [Concomitant]
     Active Substance: VITAMINS
     Dosage: UNK
  4. PREDNISONE. [Concomitant]
     Active Substance: PREDNISONE
     Indication: HYPERSENSITIVITY
     Dosage: UNK
  5. IPRATROPIUM/ALBUTEROL [Concomitant]
     Active Substance: ALBUTEROL\IPRATROPIUM
     Indication: ASTHMA
     Dosage: UNK UNK, PRN
  6. GAMUNEX?C [Suspect]
     Active Substance: HUMAN IMMUNOGLOBULIN G
     Indication: IMMUNODEFICIENCY COMMON VARIABLE
     Dosage: 5 G, TOTAL
     Route: 058
     Dates: start: 20160531, end: 20160531
  7. RITUXAN [Concomitant]
     Active Substance: RITUXIMAB
     Indication: RHEUMATOID ARTHRITIS
     Dosage: UNK UNK, Q.M.T.
  8. PROLIA [Concomitant]
     Active Substance: DENOSUMAB
     Dosage: UNK
  9. PREDNISONE. [Concomitant]
     Active Substance: PREDNISONE
     Indication: ASTHMA
  10. PREDNISONE. [Concomitant]
     Active Substance: PREDNISONE
     Indication: RHEUMATOID ARTHRITIS
  11. ADVAIR HFA [Concomitant]
     Active Substance: FLUTICASONE PROPIONATE\SALMETEROL XINAFOATE
     Indication: ASTHMA
     Dosage: UNK
  12. GAMUNEX?C [Suspect]
     Active Substance: HUMAN IMMUNOGLOBULIN G
     Dosage: 1 G, TOTAL
     Route: 058
     Dates: start: 20160531, end: 20160531

REACTIONS (5)
  - Throat tightness [Recovered/Resolved]
  - Chest discomfort [Recovered/Resolved]
  - Dysphonia [Recovered/Resolved]
  - Headache [Recovered/Resolved]
  - Dyspnoea [Recovered/Resolved]

NARRATIVE: CASE EVENT DATE: 20160531
